FAERS Safety Report 6567831-3 (Version None)
Quarter: 2010Q1

REPORT INFORMATION
  Report Type: 
  Country: None (occurrence: None)
  Receive Date: 20100203
  Receipt Date: 20100202
  Transmission Date: 20100710
  Serious: Yes (Death, Hospitalization)
  Sender: FDA-Public Use
  Company Number: JO-JNJFOC-20100110165

PATIENT
  Age: 48 Year
  Sex: Female

DRUGS (10)
  1. TAVANIC [Suspect]
     Indication: LOWER RESPIRATORY TRACT INFECTION
     Route: 042
  2. TAVANIC [Suspect]
     Route: 042
  3. VANCOMYCIN [Concomitant]
     Route: 065
  4. TIENAM [Concomitant]
     Route: 065
  5. NEXIUM [Concomitant]
     Route: 065
  6. NEUPOGEN [Concomitant]
     Route: 065
  7. DIHYDROCODEINE BITARTRATE INJ [Concomitant]
     Route: 065
  8. CLEXANE [Concomitant]
     Route: 065
  9. METHOTREXATE [Concomitant]
     Route: 065
  10. CORTICOSTEROIDS [Concomitant]
     Route: 065

REACTIONS (4)
  - CONFUSIONAL STATE [None]
  - DISORIENTATION [None]
  - PULMONARY EMBOLISM [None]
  - SEPTIC SHOCK [None]
